FAERS Safety Report 11291577 (Version 1)
Quarter: 2015Q3

REPORT INFORMATION
  Report Type: Spontaneous
  Country: ES (occurrence: ES)
  Receive Date: 20150722
  Receipt Date: 20150722
  Transmission Date: 20151125
  Serious: Yes (Other)
  Sender: FDA-Public Use
  Company Number: PHHY2015ES085676

PATIENT
  Age: 28 Year
  Sex: Male

DRUGS (1)
  1. ACETYLSALICYLIC ACID [Suspect]
     Active Substance: ASPIRIN
     Indication: HEADACHE
     Dosage: 500 MG, UNK
     Route: 065

REACTIONS (8)
  - Dyspnoea [Unknown]
  - Urticaria [Unknown]
  - Tongue oedema [Unknown]
  - Pruritus generalised [Unknown]
  - Pharyngeal disorder [Unknown]
  - Anaphylactic reaction [Unknown]
  - Abdominal pain [Unknown]
  - Lip oedema [Unknown]
